FAERS Safety Report 13155039 (Version 1)
Quarter: 2017Q1

REPORT INFORMATION
  Report Type: Spontaneous
  Country: CA (occurrence: CA)
  Receive Date: 20170126
  Receipt Date: 20170126
  Transmission Date: 20170428
  Serious: Yes (Other)
  Sender: FDA-Public Use
  Company Number: CA-PFIZER INC-2017033571

PATIENT
  Age: 40 Year
  Sex: Female

DRUGS (2)
  1. PANTOLOC [Suspect]
     Active Substance: PANTOPRAZOLE SODIUM
     Dosage: UNK
     Route: 065
  2. RIVAROXABAN [Concomitant]
     Active Substance: RIVAROXABAN
     Indication: PORTAL VEIN THROMBOSIS
     Dosage: UNK
     Route: 065

REACTIONS (5)
  - Myelofibrosis [Unknown]
  - Splenomegaly [Unknown]
  - Pain [Unknown]
  - Pruritus [Unknown]
  - Night sweats [Unknown]
